FAERS Safety Report 25721108 (Version 1)
Quarter: 2025Q3

REPORT INFORMATION
  Report Type: Spontaneous
  Country: US (occurrence: None)
  Receive Date: 20250822
  Receipt Date: 20250822
  Transmission Date: 20251021
  Serious: Yes (Other)
  Sender: FDA-CTU
  Company Number: None

PATIENT
  Age: 44 Year
  Sex: Female

DRUGS (1)
  1. DEPO-MEDROL [Suspect]
     Active Substance: METHYLPREDNISOLONE ACETATE
     Indication: Epidural injection
     Route: 008
     Dates: start: 20220212, end: 20220212

REACTIONS (10)
  - Nausea [None]
  - Vomiting [None]
  - Visual impairment [None]
  - Hypoaesthesia [None]
  - Migraine [None]
  - Tinnitus [None]
  - Rhinorrhoea [None]
  - Gait disturbance [None]
  - Injection site pain [None]
  - Injection site pruritus [None]

NARRATIVE: CASE EVENT DATE: 20220212
